FAERS Safety Report 7113142-7 (Version None)
Quarter: 2010Q4

REPORT INFORMATION
  Report Type: 
  Country: None (occurrence: None)
  Receive Date: 20101119
  Receipt Date: 20101110
  Transmission Date: 20110411
  Serious: Yes (Other)
  Sender: FDA-Public Use
  Company Number: US-PFIZER INC-US-WYE-H17978810

PATIENT
  Sex: Female
  Weight: 72 kg

DRUGS (12)
  1. EFFEXOR XR [Suspect]
     Indication: ANXIETY
     Dosage: 37 MG, UNK
     Route: 048
     Dates: start: 20061201, end: 20061201
  2. EFFEXOR XR [Suspect]
     Dosage: 75 MG, UNK
     Route: 048
     Dates: start: 20061201, end: 20061201
  3. EFFEXOR XR [Suspect]
     Dosage: 150 MG, 1X/DAY
     Route: 048
     Dates: start: 20061201, end: 20090101
  4. EFFEXOR XR [Suspect]
     Dosage: 100 MG, 1X/DAY
     Route: 048
  5. EFFEXOR XR [Suspect]
     Dosage: 75 MG, 1X/DAY
     Route: 048
  6. EFFEXOR XR [Suspect]
     Dosage: 37.5 MG, 1X/DAY
     Route: 048
     Dates: end: 20100301
  7. EFFEXOR XR [Suspect]
     Dosage: OPENING THE CAPSULE AND TAKING A CERTAIN NUMBER OF BEADS
     Route: 048
     Dates: start: 20100301, end: 20100301
  8. SYNTHROID [Concomitant]
     Dosage: UNK
     Dates: start: 20090101
  9. VITAMINS [Concomitant]
     Dosage: UNK
  10. CALCIUM [Concomitant]
     Dosage: UNK
  11. PROMETRIUM [Concomitant]
     Indication: HORMONE REPLACEMENT THERAPY
     Dosage: UNK
  12. ESTRADIOL [Concomitant]
     Indication: HORMONE REPLACEMENT THERAPY
     Dosage: UNK

REACTIONS (13)
  - ARRHYTHMIA [None]
  - BLOOD PRESSURE INCREASED [None]
  - BURNING SENSATION [None]
  - CONSTIPATION [None]
  - DIARRHOEA [None]
  - DRUG WITHDRAWAL SYNDROME [None]
  - HEADACHE [None]
  - NAUSEA [None]
  - NEUROPATHY PERIPHERAL [None]
  - PALPITATIONS [None]
  - VENTRICULAR EXTRASYSTOLES [None]
  - WEIGHT INCREASED [None]
  - WRONG TECHNIQUE IN DRUG USAGE PROCESS [None]
